FAERS Safety Report 7621444-0 (Version None)
Quarter: 2011Q3

REPORT INFORMATION
  Report Type: 
  Country: None (occurrence: None)
  Receive Date: 20110719
  Receipt Date: 20110713
  Transmission Date: 20111222
  Serious: Yes (Other)
  Sender: FDA-Public Use
  Company Number: ES-PFIZER INC-2011116336

PATIENT
  Age: 64 Year
  Sex: Female

DRUGS (6)
  1. VENLAFAXINE HCL [Suspect]
     Indication: DEPRESSION
     Dosage: 150 MG, UNK
  2. LINEZOLID [Suspect]
     Indication: ENTEROCOCCAL INFECTION
     Dosage: 3 DOSES
     Route: 042
     Dates: start: 20110418
  3. TEICOPLANIN [Concomitant]
     Indication: ENTEROCOCCAL INFECTION
     Dosage: UNK
  4. LINEZOLID [Suspect]
     Dosage: 600 MG, 2X/DAY
     Route: 048
     Dates: start: 20110419, end: 20110526
  5. VANCOMYCIN [Concomitant]
     Indication: ENTEROCOCCAL INFECTION
     Dosage: UNK
  6. ESCITALOPRAM [Suspect]

REACTIONS (5)
  - HYPERHIDROSIS [None]
  - FOOT OPERATION [None]
  - PYREXIA [None]
  - MALAISE [None]
  - ENTEROCOCCAL INFECTION [None]
